FAERS Safety Report 6692699-4 (Version None)
Quarter: 2010Q2

REPORT INFORMATION
  Report Type: 
  Country: None (occurrence: None)
  Receive Date: 20100422
  Receipt Date: 20100415
  Transmission Date: 20101027
  Serious: Yes (Hospitalization, Other)
  Sender: FDA-Public Use
  Company Number: CA-ABBOTT-10P-028-0619903-00

PATIENT
  Sex: Female
  Weight: 65.83 kg

DRUGS (12)
  1. HUMIRA [Suspect]
     Indication: RHEUMATOID ARTHRITIS
     Route: 058
     Dates: start: 20061206, end: 20091231
  2. SYNTHROID [Concomitant]
     Indication: DRUG USE FOR UNKNOWN INDICATION
  3. FERROUS SULFATE TAB [Concomitant]
     Indication: DRUG USE FOR UNKNOWN INDICATION
  4. MAGNESIUM CITRATE [Concomitant]
     Indication: DRUG USE FOR UNKNOWN INDICATION
  5. BONE BASICS CALCIUM [Concomitant]
     Indication: DRUG USE FOR UNKNOWN INDICATION
  6. VITAMIN B COMPLEX CAP [Concomitant]
     Indication: DRUG USE FOR UNKNOWN INDICATION
  7. BIO C GEL [Concomitant]
     Indication: DRUG USE FOR UNKNOWN INDICATION
  8. NAUTRO FACTORS VITAMINS [Concomitant]
     Indication: DRUG USE FOR UNKNOWN INDICATION
  9. MINERALS AND FIBRONUTRIENTS [Concomitant]
     Indication: DRUG USE FOR UNKNOWN INDICATION
  10. VITAMIN D 1000 IU [Concomitant]
     Indication: DRUG USE FOR UNKNOWN INDICATION
  11. COD LIVER OIL [Concomitant]
     Indication: DRUG USE FOR UNKNOWN INDICATION
  12. WELLNESS GLUCOSAMINE WITH CHONDROITIN [Concomitant]
     Indication: DRUG USE FOR UNKNOWN INDICATION

REACTIONS (5)
  - COLON CANCER [None]
  - EMBOLISM [None]
  - GASTROINTESTINAL PAIN [None]
  - ILL-DEFINED DISORDER [None]
  - POST PROCEDURAL INFECTION [None]
